FAERS Safety Report 7126083-6 (Version None)
Quarter: 2010Q4

REPORT INFORMATION
  Report Type: 
  Country: None (occurrence: None)
  Receive Date: 20101129
  Receipt Date: 20101122
  Transmission Date: 20110411
  Serious: Yes (Other)
  Sender: FDA-Public Use
  Company Number: JP-SANOFI-AVENTIS-2010SA064660

PATIENT
  Age: 78 Year
  Sex: Female
  Weight: 48 kg

DRUGS (3)
  1. PLAVIX [Suspect]
     Indication: ISCHAEMIC CEREBRAL INFARCTION
     Route: 048
     Dates: start: 20100820, end: 20100823
  2. 8-HOUR BAYER [Concomitant]
     Indication: ISCHAEMIC CEREBRAL INFARCTION
  3. TAKEPRON [Concomitant]

REACTIONS (1)
  - HEPATIC FUNCTION ABNORMAL [None]
